FAERS Safety Report 13850589 (Version 2)
Quarter: 2018Q2

REPORT INFORMATION
  Report Type: Report from Study
  Country: None (occurrence: US)
  Receive Date: 20170810
  Receipt Date: 20180518
  Transmission Date: 20180711
  Serious: Yes (Other)
  Sender: FDA-Public Use
  Company Number: US-ABBVIE-17K-163-2062774-00

PATIENT
  Age: 53 Year
  Sex: Male
  Weight: 132.57 kg

DRUGS (21)
  1. GABAPENTIN. [Concomitant]
     Active Substance: GABAPENTIN
     Indication: DIABETIC NEUROPATHY
  2. LEVEMIR [Concomitant]
     Active Substance: INSULIN DETEMIR
     Indication: DIABETES MELLITUS
  3. HUMIRA [Suspect]
     Active Substance: ADALIMUMAB
     Indication: PSORIASIS
     Dosage: LOADING DOSE
     Route: 058
     Dates: start: 20170317, end: 20170317
  4. ABILIFY [Concomitant]
     Active Substance: ARIPIPRAZOLE
     Indication: DEPRESSION
  5. LISINOPRIL. [Concomitant]
     Active Substance: LISINOPRIL
     Indication: PROPHYLAXIS
  6. METFORMIN [Concomitant]
     Active Substance: METFORMIN HYDROCHLORIDE
     Indication: DIABETES MELLITUS
  7. HUMIRA [Suspect]
     Active Substance: ADALIMUMAB
     Route: 058
     Dates: start: 201703, end: 20170524
  8. BETAMETHASONE VALERATE. [Concomitant]
     Active Substance: BETAMETHASONE VALERATE
     Indication: PSORIASIS
     Route: 061
  9. HUMIRA [Suspect]
     Active Substance: ADALIMUMAB
     Route: 058
     Dates: start: 20170717
  10. ALLOPURINOL. [Concomitant]
     Active Substance: ALLOPURINOL
     Indication: GOUT
  11. GLIMEPIRIDE. [Concomitant]
     Active Substance: GLIMEPIRIDE
     Indication: DIABETES MELLITUS
  12. LISINOPRIL. [Concomitant]
     Active Substance: LISINOPRIL
     Indication: RENAL IMPAIRMENT
  13. TRILIPIX [Concomitant]
     Active Substance: FENOFIBRIC ACID
     Indication: BLOOD CHOLESTEROL INCREASED
  14. ASPIRIN. [Concomitant]
     Active Substance: ASPIRIN
     Indication: PRODUCT USED FOR UNKNOWN INDICATION
  15. BENZTROPINE. [Concomitant]
     Active Substance: BENZTROPINE
     Indication: MUSCLE TWITCHING
  16. NOVOLOG [Concomitant]
     Active Substance: INSULIN ASPART
     Indication: DIABETES MELLITUS
  17. VENLAFAXINE [Concomitant]
     Active Substance: VENLAFAXINE HYDROCHLORIDE
     Indication: DEPRESSION
  18. METOPROLOL TARTRATE. [Concomitant]
     Active Substance: METOPROLOL TARTRATE
     Indication: HEART RATE INCREASED
  19. SIMVASTATIN. [Concomitant]
     Active Substance: SIMVASTATIN
     Indication: BLOOD CHOLESTEROL INCREASED
  20. TAMSULOSIN [Concomitant]
     Active Substance: TAMSULOSIN
     Indication: PROSTATOMEGALY
  21. ZETIA [Concomitant]
     Active Substance: EZETIMIBE
     Indication: BLOOD CHOLESTEROL INCREASED

REACTIONS (8)
  - Gout [Recovering/Resolving]
  - Hypertension [Recovering/Resolving]
  - Psoriasis [Recovering/Resolving]
  - Device issue [Unknown]
  - Sleep apnoea syndrome [Recovering/Resolving]
  - Carpal tunnel syndrome [Recovered/Resolved]
  - Diabetes mellitus [Recovering/Resolving]
  - Blood cholesterol increased [Recovering/Resolving]

NARRATIVE: CASE EVENT DATE: 2017
